FAERS Safety Report 24240277 (Version 4)
Quarter: 2024Q3

REPORT INFORMATION
  Report Type: Report from Study
  Country: CA (occurrence: CA)
  Receive Date: 20240822
  Receipt Date: 20240925
  Transmission Date: 20241016
  Serious: Yes (Hospitalization, Other)
  Sender: BAUSCH AND LOMB
  Company Number: CA-BAUSCH-BL-2023-011636

PATIENT
  Age: 32 Year
  Sex: Female

DRUGS (2)
  1. SILIQ [Suspect]
     Active Substance: BRODALUMAB
     Indication: Psoriasis
     Dosage: 210MG/1.5ML, WEEKLY (WEEK 0 - WEEK 2)
     Route: 058
     Dates: start: 20230720, end: 20230803
  2. SILIQ [Suspect]
     Active Substance: BRODALUMAB
     Dosage: 210MG/1.5ML, Q 2 WEEKS
     Route: 058
     Dates: start: 202308, end: 2024

REACTIONS (17)
  - Abortion spontaneous [Unknown]
  - Urticaria [Not Recovered/Not Resolved]
  - Infection [Not Recovered/Not Resolved]
  - Fear of injection [Unknown]
  - Pruritus [Not Recovered/Not Resolved]
  - Depressed mood [Unknown]
  - Ill-defined disorder [Unknown]
  - Increased tendency to bruise [Unknown]
  - Impaired healing [Unknown]
  - Rash pruritic [Not Recovered/Not Resolved]
  - Headache [Unknown]
  - Injection site pain [Unknown]
  - Maternal exposure during pregnancy [Unknown]
  - Insurance issue [Unknown]
  - Product use issue [Unknown]
  - Intentional dose omission [Unknown]
  - Therapy cessation [Unknown]

NARRATIVE: CASE EVENT DATE: 20230101
